FAERS Safety Report 13886572 (Version 4)
Quarter: 2023Q1

REPORT INFORMATION
  Report Type: Spontaneous
  Country: US (occurrence: US)
  Receive Date: 20170821
  Receipt Date: 20230315
  Transmission Date: 20230418
  Serious: Yes (Death, Life-Threatening, Hospitalization, Other)
  Sender: FDA-Public Use
  Company Number: US-MLMSERVICE-20170814-0846234-1

PATIENT
  Age: 76 Year
  Sex: Female

DRUGS (3)
  1. CEFTRIAXONE SODIUM [Suspect]
     Active Substance: CEFTRIAXONE SODIUM
     Indication: Pneumonia
     Dosage: UNK(EMPERICAL TREATMENT)
  2. MEROPENEM [Suspect]
     Active Substance: MEROPENEM
     Indication: Pneumonia
     Dosage: UNK(EMPERICAL TREATMENT)
  3. AZITHROMYCIN [Concomitant]
     Active Substance: AZITHROMYCIN
     Indication: Pneumonia
     Dosage: UNK

REACTIONS (4)
  - Factor V inhibition [Fatal]
  - Subdural haematoma [Fatal]
  - Cerebral haemorrhage [Fatal]
  - Brain herniation [Fatal]
